FAERS Safety Report 5507391-9 (Version None)
Quarter: 2007Q4

REPORT INFORMATION
  Report Type: 
  Country: None (occurrence: None)
  Receive Date: 20071102
  Receipt Date: 20071018
  Transmission Date: 20080405
  Serious: Yes (Other)
  Sender: FDA-Public Use
  Company Number: STI-2007-01742

PATIENT
  Age: 54 Year

DRUGS (1)
  1. CLOBETASOL PROPIONATE [Suspect]
     Indication: SKIN COSMETIC PROCEDURE

REACTIONS (2)
  - SKIN DISORDER [None]
  - SUNBURN [None]
